FAERS Safety Report 4813966-2 (Version None)
Quarter: 2005Q4

REPORT INFORMATION
  Report Type: 
  Country: None (occurrence: None)
  Receive Date: 20051028
  Receipt Date: 20041122
  Transmission Date: 20060501
  Serious: No
  Sender: FDA-Public Use
  Company Number: US-GLAXOSMITHKLINE-A0534861A

PATIENT
  Sex: Female

DRUGS (9)
  1. SEREVENT [Suspect]
     Indication: ASTHMA
     Dosage: 1PUFF TWICE PER DAY
     Route: 055
  2. ALUPENT [Concomitant]
     Route: 065
  3. PREMARIN [Concomitant]
     Route: 065
  4. THEO-DUR [Concomitant]
     Route: 065
  5. CALCIUM GLUCONATE [Concomitant]
  6. MAGNESIUM [Concomitant]
  7. ASCORBIC ACID [Concomitant]
  8. FLAX SEED OIL [Concomitant]
  9. VITAMIN E [Concomitant]

REACTIONS (1)
  - CHEST DISCOMFORT [None]
